FAERS Safety Report 13089715 (Version 3)
Quarter: 2019Q1

REPORT INFORMATION
  Report Type: Spontaneous
  Country: JP (occurrence: JP)
  Receive Date: 20170105
  Receipt Date: 20190222
  Transmission Date: 20190417
  Serious: Yes (Other)
  Sender: FDA-Public Use
  Company Number: JP-SA-2016SA237687

PATIENT
  Age: 7 Decade
  Sex: Female

DRUGS (4)
  1. ELPLAT [Suspect]
     Active Substance: OXALIPLATIN
     Indication: COLON CANCER
     Dosage: UNK UNK,QD, INJECTION
     Route: 041
  2. CALCIUM LEVOFOLINATE [Suspect]
     Active Substance: LEVOLEUCOVORIN CALCIUM
     Indication: COLON CANCER
     Dosage: UNK UNK,QD, INJECTION
     Route: 041
  3. FLUOROURACIL. [Concomitant]
     Active Substance: FLUOROURACIL
     Indication: COLON CANCER
     Dosage: UNK UNK,QCY
     Route: 040
  4. FLUOROURACIL. [Concomitant]
     Active Substance: FLUOROURACIL
     Dosage: UNK UNK,QCY
     Route: 042

REACTIONS (7)
  - Hyperammonaemia [Recovered/Resolved]
  - Hepatic enzyme increased [Unknown]
  - Nausea [Recovering/Resolving]
  - Dehydration [Unknown]
  - Metabolic acidosis [Unknown]
  - Vomiting [Recovered/Resolved]
  - Altered state of consciousness [Recovered/Resolved]
